FAERS Safety Report 9922752 (Version 1)
Quarter: 2014Q1

REPORT INFORMATION
  Report Type: Spontaneous
  Country: US (occurrence: US)
  Receive Date: 20140225
  Receipt Date: 20140225
  Transmission Date: 20141002
  Serious: Yes (Hospitalization, Disabling, Other)
  Sender: FDA-Public Use
  Company Number: US-ACTAVIS-2014-02979

PATIENT
  Age: 71 Year
  Sex: Male

DRUGS (1)
  1. PHENYTOIN (AMALLC) [Suspect]
     Indication: CONVULSION
     Dosage: UNK
     Route: 042

REACTIONS (1)
  - Purple glove syndrome [Not Recovered/Not Resolved]
